FAERS Safety Report 14004510 (Version 1)
Quarter: 2017Q3

REPORT INFORMATION
  Report Type: Spontaneous
  Country: US (occurrence: US)
  Receive Date: 20170922
  Receipt Date: 20170922
  Transmission Date: 20171128
  Serious: Yes (Hospitalization)
  Sender: FDA-Public Use
  Company Number: US-TESARO INC.-TS50-00420-2017USA

PATIENT
  Sex: Female

DRUGS (2)
  1. ROLAPITANT HYDROCHLORIDE [Suspect]
     Active Substance: ROLAPITANT
     Indication: NAUSEA
     Dosage: 180 MG EVERY TWO WEEKS
     Route: 048
     Dates: start: 20170823
  2. ROLAPITANT HYDROCHLORIDE [Suspect]
     Active Substance: ROLAPITANT
     Indication: VOMITING

REACTIONS (2)
  - Diarrhoea [Unknown]
  - Dehydration [Unknown]
